FAERS Safety Report 10026553 (Version 1)
Quarter: 2014Q1

REPORT INFORMATION
  Report Type: Spontaneous
  Country: US (occurrence: US)
  Receive Date: 20140321
  Receipt Date: 20140321
  Transmission Date: 20141002
  Serious: Yes (Other)
  Sender: FDA-Public Use
  Company Number: US-BIOGENIDEC-2014BI025522

PATIENT
  Sex: Female

DRUGS (6)
  1. TECFIDERA [Suspect]
     Indication: PRODUCT USED FOR UNKNOWN INDICATION
     Route: 048
  2. AMPYRA [Concomitant]
  3. SYNTHROID [Concomitant]
  4. LOTREL [Concomitant]
  5. VITAMIN D-3 [Concomitant]
  6. PROVIGIL [Concomitant]

REACTIONS (3)
  - Fall [Recovered/Resolved]
  - Ankle fracture [Unknown]
  - Spinal fracture [Unknown]
